FAERS Safety Report 5748843-6 (Version None)
Quarter: 2008Q2

REPORT INFORMATION
  Report Type: 
  Country: None (occurrence: None)
  Receive Date: 20080522
  Receipt Date: 20080505
  Transmission Date: 20081010
  Serious: Yes (Hospitalization)
  Sender: FDA-Public Use
  Company Number: 2008AL003351

PATIENT
  Sex: Male

DRUGS (1)
  1. DIGOXIN [Suspect]

REACTIONS (5)
  - ASTHENIA [None]
  - CARDIAC DISORDER [None]
  - DIZZINESS [None]
  - HYPOTENSION [None]
  - JOINT SWELLING [None]
